FAERS Safety Report 7981326-1 (Version None)
Quarter: 2011Q4

REPORT INFORMATION
  Report Type: 
  Country: None (occurrence: None)
  Receive Date: 20111212
  Receipt Date: 20111202
  Transmission Date: 20120403
  Serious: Yes (Other)
  Sender: FDA-Public Use
  Company Number: 1125182

PATIENT
  Age: 30 Year
  Sex: Female

DRUGS (11)
  1. NORETHINDRONE [Suspect]
     Indication: PRODUCT USED FOR UNKNOWN INDICATION
     Dosage: 5 MG MILLIGRAM(S)
     Dates: start: 20110811, end: 20111002
  2. LANSOPRAZOLE [Concomitant]
  3. ACYCLOVIR [Concomitant]
  4. CYTARABINE [Suspect]
     Indication: MYELODYSPLASTIC SYNDROME
     Dosage: INTRAMUSCULAR
     Route: 030
     Dates: start: 20110812
  5. CYTARABINE [Suspect]
     Indication: ACUTE MYELOID LEUKAEMIA
     Dosage: INTRAMUSCULAR
     Route: 030
     Dates: start: 20110812
  6. ALLOPURINOL [Concomitant]
  7. DAUNORUBICIN HCL [Suspect]
     Indication: ACUTE MYELOID LEUKAEMIA
     Dates: start: 20110812
  8. DAUNORUBICIN HCL [Suspect]
     Indication: MYELODYSPLASTIC SYNDROME
     Dates: start: 20110812
  9. ITRACONAZOLE [Suspect]
     Indication: PRODUCT USED FOR UNKNOWN INDICATION
     Dosage: 200 MG MILLIGRAM(S)
     Dates: start: 20110812, end: 20110920
  10. GEMTUZUMAB OZOGAMICIN [Suspect]
     Indication: MYELODYSPLASTIC SYNDROME
     Dosage: 6 MG MILLIGRAM(S)
     Dates: start: 20110812
  11. GEMTUZUMAB OZOGAMICIN [Suspect]
     Indication: ACUTE MYELOID LEUKAEMIA
     Dosage: 6 MG MILLIGRAM(S)
     Dates: start: 20110812

REACTIONS (2)
  - HEPATOTOXICITY [None]
  - ALANINE AMINOTRANSFERASE INCREASED [None]
